FAERS Safety Report 25488047 (Version 2)
Quarter: 2025Q3

REPORT INFORMATION
  Report Type: Report from Study
  Country: US (occurrence: US)
  Receive Date: 20250627
  Receipt Date: 20250917
  Transmission Date: 20251020
  Serious: Yes (Other)
  Sender: ABBVIE
  Company Number: US-ABBVIE-6029760

PATIENT
  Age: 69 Year
  Sex: Male

DRUGS (2)
  1. LUPRON [Suspect]
     Active Substance: LEUPROLIDE ACETATE
     Indication: Product used for unknown indication
     Route: 065
     Dates: start: 20241023
  2. LUPRON [Suspect]
     Active Substance: LEUPROLIDE ACETATE
     Dosage: EVERY THREE MONTHS
     Route: 065

REACTIONS (3)
  - Neoplasm malignant [Unknown]
  - Hot flush [Recovering/Resolving]
  - Fatigue [Unknown]

NARRATIVE: CASE EVENT DATE: 20240101
